FAERS Safety Report 6342252-7 (Version None)
Quarter: 2009Q3

REPORT INFORMATION
  Report Type: 
  Country: None (occurrence: None)
  Receive Date: 20090907
  Receipt Date: 20070725
  Transmission Date: 20100115
  Serious: Yes (Hospitalization)
  Sender: FDA-Public Use
  Company Number: US-ASTRAZENECA-2007UW12024

PATIENT
  Age: 476 Month
  Sex: Male

DRUGS (10)
  1. SEROQUEL [Suspect]
     Indication: BIPOLAR DISORDER
     Dosage: 25 MG ONE IN THE MORNING AND TWO AT BEDTIME
     Route: 048
     Dates: start: 20020810
  2. SEROQUEL [Suspect]
     Indication: DEPRESSION
     Dosage: 25 MG ONE IN THE MORNING AND TWO AT BEDTIME
     Route: 048
     Dates: start: 20020810
  3. SEROQUEL [Suspect]
     Route: 048
     Dates: start: 20030101, end: 20070201
  4. SEROQUEL [Suspect]
     Route: 048
     Dates: start: 20030101, end: 20070201
  5. SEROQUEL [Suspect]
     Route: 048
     Dates: start: 20050702
  6. SEROQUEL [Suspect]
     Route: 048
     Dates: start: 20050702
  7. RISPERDAL [Concomitant]
  8. REMERON [Concomitant]
     Dosage: 15 MG - 50 MG
     Dates: start: 20020907
  9. EFFEXOR XR [Concomitant]
     Dates: start: 20020810
  10. XANAX [Concomitant]
     Dates: start: 20020907

REACTIONS (9)
  - ALCOHOL USE [None]
  - DIABETES MELLITUS [None]
  - DRUG SCREEN POSITIVE [None]
  - INTENTIONAL OVERDOSE [None]
  - MENTAL STATUS CHANGES [None]
  - RESPIRATORY FAILURE [None]
  - SPUTUM CULTURE POSITIVE [None]
  - STAPHYLOCOCCAL INFECTION [None]
  - STREPTOCOCCAL INFECTION [None]
